FAERS Safety Report 17206242 (Version 1)
Quarter: 2020Q1

REPORT INFORMATION
  Report Type: Spontaneous
  Country: US (occurrence: US)
  Receive Date: 20191226
  Receipt Date: 20191226
  Transmission Date: 20200409
  Serious: Yes (Hospitalization)
  Sender: FDA-Public Use
  Company Number: None

PATIENT
  Age: 32 Year
  Sex: Male

DRUGS (1)
  1. CAPECITABINE TABLET [Suspect]
     Active Substance: CAPECITABINE
     Indication: COLON CANCER
     Route: 048
     Dates: start: 20190911

REACTIONS (3)
  - Respiratory disorder [None]
  - Dyspnoea [None]
  - Pleural disorder [None]

NARRATIVE: CASE EVENT DATE: 20191224
